FAERS Safety Report 23428375 (Version 1)
Quarter: 2024Q1

REPORT INFORMATION
  Report Type: Spontaneous
  Country: US (occurrence: None)
  Receive Date: 20240120
  Receipt Date: 20240120
  Transmission Date: 20240410
  Serious: Yes (Life-Threatening, Hospitalization, Other)
  Sender: FDA-Public Use
  Company Number: None

PATIENT
  Age: 66 Year
  Sex: Female
  Weight: 75.15 kg

DRUGS (14)
  1. MONTELUKAST SODIUM [Suspect]
     Active Substance: MONTELUKAST SODIUM
     Indication: Rhinitis allergic
     Dosage: 1 TABLET DAILY ORAL
     Route: 048
     Dates: start: 20210930, end: 20240108
  2. OXYGEN [Concomitant]
     Active Substance: OXYGEN
  3. METHYLPHENIDATE [Concomitant]
     Active Substance: METHYLPHENIDATE
  4. Paroxtine [Concomitant]
  5. ALBUTEROL SULFATE [Concomitant]
     Active Substance: ALBUTEROL SULFATE
  6. ANORO ELLIPTA [Concomitant]
     Active Substance: UMECLIDINIUM BROMIDE\VILANTEROL TRIFENATATE
  7. UMECLIDINIUM [Concomitant]
     Active Substance: UMECLIDINIUM
  8. VILANTEROL [Concomitant]
     Active Substance: VILANTEROL
  9. OLANZAPINE [Concomitant]
     Active Substance: OLANZAPINE
  10. ALLEGRA [Concomitant]
     Active Substance: FEXOFENADINE HYDROCHLORIDE
  11. FLUTICASONE PROPIONATE [Concomitant]
     Active Substance: FLUTICASONE PROPIONATE
  12. GLUCOSAMINE [Concomitant]
     Active Substance: GLUCOSAMINE
  13. CHONDROITIN [Concomitant]
     Active Substance: CHONDROITIN
  14. NAPROXEN SODIUM [Concomitant]
     Active Substance: NAPROXEN\NAPROXEN SODIUM

REACTIONS (3)
  - Psychotic disorder [None]
  - Oxygen saturation decreased [None]
  - Depression [None]

NARRATIVE: CASE EVENT DATE: 20230415
